FAERS Safety Report 4744648-3 (Version None)
Quarter: 2005Q3

REPORT INFORMATION
  Report Type: 
  Country: None (occurrence: None)
  Receive Date: 20050812
  Receipt Date: 20050812
  Transmission Date: 20060218
  Serious: Yes (Disabling)
  Sender: FDA-Public Use
  Company Number: None

PATIENT
  Age: 78 Year
  Sex: Male
  Weight: 93.8946 kg

DRUGS (1)
  1. LEVAQUIN [Suspect]
     Indication: SINUSITIS
     Dosage: 500 MG ONCE DAILY
     Dates: start: 20050617, end: 20050624

REACTIONS (5)
  - BACK PAIN [None]
  - DIFFICULTY IN WALKING [None]
  - JOINT SWELLING [None]
  - LIGAMENT DISORDER [None]
  - MYALGIA [None]
